FAERS Safety Report 5711551-1 (Version None)
Quarter: 2008Q2

REPORT INFORMATION
  Report Type: 
  Country: None (occurrence: None)
  Receive Date: 20080415
  Receipt Date: 20080401
  Transmission Date: 20081010
  Serious: Yes (Hospitalization)
  Sender: FDA-Public Use
  Company Number: 100#03#2008-01832

PATIENT
  Age: 29 Year
  Sex: Female

DRUGS (4)
  1. CITALOPRAM HYDROBROMIDE [Suspect]
     Indication: DRUG USE FOR UNKNOWN INDICATION
     Dosage: 40 MG AT ONCE; 20 MG ONCE DAILY ORAL
     Route: 048
     Dates: start: 20080211, end: 20080211
  2. CLOZARIL [Suspect]
     Indication: SCHIZOPHRENIA
     Dosage: 1800 MG AT ONCE; 450 MG ONCE DAILY ORAL
     Route: 048
     Dates: start: 20080211, end: 20080211
  3. CLOZARIL [Suspect]
     Indication: SCHIZOPHRENIA
     Dosage: 1800 MG AT ONCE; 450 MG ONCE DAILY ORAL
     Route: 048
     Dates: start: 20060816
  4. DIAZEPAM [Suspect]
     Indication: DRUG USE FOR UNKNOWN INDICATION
     Dosage: 8 MG AT ONCE ; 2 MG ONCE DAILY ORAL
     Route: 048
     Dates: start: 20080211, end: 20080211

REACTIONS (1)
  - MULTIPLE DRUG OVERDOSE [None]
